FAERS Safety Report 10295870 (Version 1)
Quarter: 2014Q3

REPORT INFORMATION
  Report Type: Spontaneous
  Country: GB (occurrence: GB)
  Receive Date: 20140710
  Receipt Date: 20140710
  Transmission Date: 20150326
  Serious: Yes (Other)
  Sender: FDA-Public Use
  Company Number: GB-ACTAVIS-2014-14704

PATIENT
  Age: 9 Month
  Sex: Female
  Weight: 9 kg

DRUGS (2)
  1. RANITIDINE (UNKNOWN) [Suspect]
     Active Substance: RANITIDINE HYDROCHLORIDE
     Indication: REFLUX LARYNGITIS
     Dosage: 1.3 ML, BID; (75MG/5ML)
     Route: 048
     Dates: start: 20140606
  2. GAVISCON                           /00237601/ [Concomitant]
     Active Substance: ALUMINUM HYDROXIDE\MAGNESIUM CARBONATE
     Indication: PRODUCT USED FOR UNKNOWN INDICATION
     Dosage: UNK; GAVISCON INFANT
     Route: 065

REACTIONS (1)
  - Abdominal pain upper [Not Recovered/Not Resolved]

NARRATIVE: CASE EVENT DATE: 20140612
